FAERS Safety Report 5163879-4 (Version None)
Quarter: 2006Q4

REPORT INFORMATION
  Report Type: 
  Country: None (occurrence: None)
  Receive Date: 20061204
  Receipt Date: 20020618
  Transmission Date: 20070319
  Serious: Yes (Hospitalization)
  Sender: FDA-Public Use
  Company Number: US-BRISTOL-MYERS SQUIBB COMPANY-11919339

PATIENT
  Age: 13 Day
  Sex: Male
  Weight: 3 kg

DRUGS (11)
  1. ZERIT [Suspect]
     Route: 064
     Dates: end: 20020202
  2. ZERIT [Suspect]
     Dosage: 1 MG/ML
     Route: 048
     Dates: start: 20020202, end: 20020227
  3. EPIVIR [Suspect]
     Route: 064
     Dates: end: 20020202
  4. VIRACEPT [Suspect]
     Route: 064
     Dates: end: 20020202
  5. RETROVIR [Suspect]
     Dosage: 200 MG/20 ML-AT DELIVERY
     Route: 064
     Dates: start: 20020202, end: 20020202
  6. BACTRIM [Suspect]
     Route: 064
  7. PULMICORT [Concomitant]
     Route: 064
  8. BRICANYL [Concomitant]
     Route: 064
  9. VENTOLIN [Concomitant]
     Route: 064
  10. BECOTIDE [Concomitant]
     Route: 064
  11. GYNOPEVARYL [Concomitant]
     Route: 064

REACTIONS (14)
  - ASPARTATE AMINOTRANSFERASE INCREASED [None]
  - BLOOD CREATINE PHOSPHOKINASE INCREASED [None]
  - BLOOD LACTIC ACID INCREASED [None]
  - BLOOD PYRUVIC ACID INCREASED [None]
  - CARDIAC MURMUR [None]
  - FOETAL DISTRESS SYNDROME [None]
  - HYPERTONIA [None]
  - LIPASE INCREASED [None]
  - PLATELET COUNT INCREASED [None]
  - PREGNANCY [None]
  - THROMBOCYTHAEMIA [None]
  - TREMOR NEONATAL [None]
  - VASCULITIS [None]
  - VISUAL ACUITY REDUCED [None]
